FAERS Safety Report 11269820 (Version 1)
Quarter: 2015Q3

REPORT INFORMATION
  Report Type: Spontaneous
  Country: US (occurrence: US)
  Receive Date: 20150714
  Receipt Date: 20150714
  Transmission Date: 20151125
  Serious: No
  Sender: FDA-Public Use
  Company Number: US-BAYER-2015-377585

PATIENT
  Age: 31 Year
  Sex: Male

DRUGS (2)
  1. BETASERON [Suspect]
     Active Substance: INTERFERON BETA-1B
     Indication: MULTIPLE SCLEROSIS
     Dosage: 0.3 MG, UNK
     Route: 058
     Dates: start: 20130701
  2. AMPYRA [Concomitant]
     Active Substance: DALFAMPRIDINE

REACTIONS (2)
  - Balance disorder [None]
  - Insomnia [None]

NARRATIVE: CASE EVENT DATE: 20140701
